FAERS Safety Report 10456351 (Version 2)
Quarter: 2014Q4

REPORT INFORMATION
  Report Type: Spontaneous
  Country: US (occurrence: None)
  Receive Date: 20140912
  Receipt Date: 20141121
  Transmission Date: 20150528
  Serious: Yes (Hospitalization)
  Sender: FDA-Public Use
  Company Number: 2014-US-011342

PATIENT
  Age: 46 Year
  Sex: Male

DRUGS (13)
  1. PRIALT [Suspect]
     Active Substance: ZICONOTIDE ACETATE
     Indication: BACK PAIN
     Route: 037
     Dates: start: 20140813, end: 20140905
  2. CITALOPRAM (CITALOPRAM HYDROBROMIDE) [Concomitant]
  3. THERACODOPHEN-325 [Concomitant]
     Active Substance: .GAMMA.-AMINOBUTYRIC ACID\ACETAMINOPHEN\HYDROCODONE BITARTRATE
  4. ADVAIR DISKUS [Concomitant]
     Active Substance: FLUTICASONE PROPIONATE\SALMETEROL XINAFOATE
  5. LASIX [Concomitant]
     Active Substance: FUROSEMIDE
  6. PRIALT [Suspect]
     Active Substance: ZICONOTIDE ACETATE
     Indication: PAIN
     Route: 037
     Dates: start: 20140813, end: 20140905
  7. FLEXERIL [Concomitant]
     Active Substance: CYCLOBENZAPRINE HYDROCHLORIDE
  8. SOMINEX (METHAPYRILENE HYDROCHLORIDE, SALICYLAMIDE, SCOPOLAINE AMINOXIDE HYDROBROMIDE) [Concomitant]
  9. TRAZODONE HCL (TRAZODONE HYDROCHLORIDE) [Concomitant]
  10. LYRICA [Concomitant]
     Active Substance: PREGABALIN
  11. KLONOPIN [Concomitant]
     Active Substance: CLONAZEPAM
  12. OPANA [Concomitant]
     Active Substance: OXYMORPHONE HYDROCHLORIDE
  13. LISINOPRIL (LISINOPRIL) [Concomitant]
     Active Substance: LISINOPRIL

REACTIONS (3)
  - Oedema [None]
  - Blood creatine phosphokinase increased [None]
  - Cardiac failure congestive [None]

NARRATIVE: CASE EVENT DATE: 201409
